FAERS Safety Report 20549561 (Version 5)
Quarter: 2022Q2

REPORT INFORMATION
  Report Type: Report from Study
  Country: JP (occurrence: JP)
  Receive Date: 20220303
  Receipt Date: 20220513
  Transmission Date: 20220721
  Serious: Yes (Hospitalization)
  Sender: FDA-Public Use
  Company Number: JP-ABBVIE-22K-087-4256979-00

PATIENT
  Age: 76 Year
  Sex: Female
  Weight: 46 kg

DRUGS (6)
  1. VENCLEXTA [Suspect]
     Active Substance: VENETOCLAX
     Indication: Acute myeloid leukaemia
     Route: 048
     Dates: start: 20210506, end: 202105
  2. VENCLEXTA [Suspect]
     Active Substance: VENETOCLAX
     Route: 048
     Dates: start: 20210510, end: 20210526
  3. VENCLEXTA [Suspect]
     Active Substance: VENETOCLAX
     Route: 048
     Dates: start: 20210607, end: 20210627
  4. VENCLEXTA [Suspect]
     Active Substance: VENETOCLAX
     Route: 048
     Dates: start: 2021, end: 2021
  5. VENCLEXTA [Suspect]
     Active Substance: VENETOCLAX
     Route: 048
     Dates: start: 20210803, end: 20210825
  6. AZACITIDINE [Concomitant]
     Active Substance: AZACITIDINE
     Indication: Acute myeloid leukaemia
     Route: 050
     Dates: start: 20210506

REACTIONS (4)
  - Urinary tract infection [Recovering/Resolving]
  - Febrile neutropenia [Recovered/Resolved]
  - Febrile neutropenia [Recovering/Resolving]
  - Gingival bleeding [Recovering/Resolving]

NARRATIVE: CASE EVENT DATE: 20210527
